FAERS Safety Report 7686145-1 (Version None)
Quarter: 2011Q3

REPORT INFORMATION
  Report Type: 
  Country: None (occurrence: None)
  Receive Date: 20110816
  Receipt Date: 20110812
  Transmission Date: 20111222
  Serious: No
  Sender: FDA-Public Use
  Company Number: US-PFIZER INC-2011186309

PATIENT
  Sex: Male
  Weight: 63.492 kg

DRUGS (7)
  1. BUTALBITAL AND CAFFEINE AND PARACETAMOL [Concomitant]
     Indication: HEADACHE
     Dosage: UNK
  2. LOVAZA [Concomitant]
     Dosage: UNK, 4X/DAY
  3. BUPROPION [Concomitant]
     Dosage: UNK, 1X/DAY
  4. COZAAR [Concomitant]
     Indication: BLOOD PRESSURE ABNORMAL
     Dosage: UNK
  5. OMEPRAZOLE [Concomitant]
     Dosage: 20 MG, UNK
  6. IBUPROFEN [Concomitant]
     Indication: HEADACHE
     Dosage: UNK
  7. LIPITOR [Suspect]
     Indication: BLOOD CHOLESTEROL INCREASED
     Dosage: 5 MG, 1X/DAY
     Route: 048
     Dates: start: 20110701

REACTIONS (2)
  - MUSCULOSKELETAL PAIN [None]
  - SENSORY DISTURBANCE [None]
